FAERS Safety Report 20877331 (Version 2)
Quarter: 2022Q2

REPORT INFORMATION
  Report Type: Spontaneous
  Country: CA (occurrence: CA)
  Receive Date: 20220526
  Receipt Date: 20220601
  Transmission Date: 20220721
  Serious: Yes (Hospitalization, Other)
  Sender: FDA-Public Use
  Company Number: CA-BRISTOL-MYERS SQUIBB COMPANY-2022-044320

PATIENT
  Age: 47 Year
  Sex: Female
  Weight: 73 kg

DRUGS (49)
  1. ORENCIA [Suspect]
     Active Substance: ABATACEPT
     Indication: Rheumatoid arthritis
     Route: 058
  2. ORENCIA [Suspect]
     Active Substance: ABATACEPT
     Indication: Product used for unknown indication
  3. ACTEMRA [Concomitant]
     Active Substance: TOCILIZUMAB
     Indication: Rheumatoid arthritis
     Route: 058
  4. ACTEMRA [Concomitant]
     Active Substance: TOCILIZUMAB
     Indication: Product used for unknown indication
     Route: 058
  5. ACTEMRA [Concomitant]
     Active Substance: TOCILIZUMAB
     Route: 042
  6. ADALIMUMAB [Concomitant]
     Active Substance: ADALIMUMAB
     Indication: Product used for unknown indication
     Route: 058
  7. ADALIMUMAB [Concomitant]
     Active Substance: ADALIMUMAB
     Route: 058
  8. AMMONIUM CHLORIDE;GUAIFENESIN;SULFAMETHOXAZOLE;TRIMETHOPRIM [Concomitant]
     Indication: Product used for unknown indication
  9. ARAVA [Concomitant]
     Active Substance: LEFLUNOMIDE
     Indication: Product used for unknown indication
     Route: 048
  10. CELEBREX [Concomitant]
     Active Substance: CELECOXIB
     Indication: Rheumatoid arthritis
  11. ENBREL [Concomitant]
     Active Substance: ETANERCEPT
     Indication: Rheumatoid arthritis
     Route: 058
  12. ENBREL [Concomitant]
     Active Substance: ETANERCEPT
     Route: 058
  13. FOLIC ACID [Concomitant]
     Active Substance: FOLIC ACID
     Indication: Product used for unknown indication
  14. HUMIRA [Concomitant]
     Active Substance: ADALIMUMAB
     Indication: Rheumatoid arthritis
     Route: 058
  15. HUMIRA [Concomitant]
     Active Substance: ADALIMUMAB
     Indication: Product used for unknown indication
     Route: 058
  16. HUMIRA [Concomitant]
     Active Substance: ADALIMUMAB
     Route: 058
  17. HUMIRA [Concomitant]
     Active Substance: ADALIMUMAB
     Route: 058
  18. HYDROXYCHLOROQUINE [Concomitant]
     Active Substance: HYDROXYCHLOROQUINE
     Indication: Rheumatoid arthritis
  19. HYDROXYCHLOROQUINE [Concomitant]
     Active Substance: HYDROXYCHLOROQUINE
  20. HYDROXYCHLOROQUINE [Concomitant]
     Active Substance: HYDROXYCHLOROQUINE
  21. HYDROXYCHLOROQUINE [Concomitant]
     Active Substance: HYDROXYCHLOROQUINE
     Route: 048
  22. HYDROXYCHLOROQUINE [Concomitant]
     Active Substance: HYDROXYCHLOROQUINE
  23. HYDROXYCHLOROQUINE [Concomitant]
     Active Substance: HYDROXYCHLOROQUINE
     Route: 048
  24. HYDROXYCHLOROQUINE [Concomitant]
     Active Substance: HYDROXYCHLOROQUINE
  25. HYDROXYCHLOROQUINE [Concomitant]
     Active Substance: HYDROXYCHLOROQUINE
     Route: 048
  26. HYDROXYCHLOROQUINE [Concomitant]
     Active Substance: HYDROXYCHLOROQUINE
  27. LEFLUNOMIDE [Concomitant]
     Active Substance: LEFLUNOMIDE
     Indication: Rheumatoid arthritis
  28. LEFLUNOMIDE [Concomitant]
     Active Substance: LEFLUNOMIDE
     Indication: Product used for unknown indication
  29. LEFLUNOMIDE [Concomitant]
     Active Substance: LEFLUNOMIDE
  30. METHOTREXATE [Concomitant]
     Active Substance: METHOTREXATE
     Indication: Rheumatoid arthritis
  31. METHOTREXATE [Concomitant]
     Active Substance: METHOTREXATE
     Indication: Product used for unknown indication
     Route: 048
  32. METHOTREXATE [Concomitant]
     Active Substance: METHOTREXATE
     Route: 048
  33. METHOTREXATE [Concomitant]
     Active Substance: METHOTREXATE
     Route: 058
  34. METHOTREXATE [Concomitant]
     Active Substance: METHOTREXATE
  35. MYOCHRYSINE [Concomitant]
     Active Substance: GOLD SODIUM THIOMALATE
     Indication: Rheumatoid arthritis
     Route: 030
  36. PREDNISONE [Concomitant]
     Active Substance: PREDNISONE
     Indication: Product used for unknown indication
  37. PREDNISONE [Concomitant]
     Active Substance: PREDNISONE
     Route: 048
  38. PREDNISONE [Concomitant]
     Active Substance: PREDNISONE
  39. REMICADE [Concomitant]
     Active Substance: INFLIXIMAB
     Indication: Product used for unknown indication
     Route: 042
  40. RITUXIMAB [Concomitant]
     Active Substance: RITUXIMAB
     Indication: Rheumatoid arthritis
  41. RITUXIMAB [Concomitant]
     Active Substance: RITUXIMAB
     Indication: Product used for unknown indication
     Route: 042
  42. SEPTRA [Concomitant]
     Active Substance: SULFAMETHOXAZOLE\TRIMETHOPRIM
  43. SIMPONI [Concomitant]
     Active Substance: GOLIMUMAB
     Route: 058
  44. SULFASALAZINE [Concomitant]
     Active Substance: SULFASALAZINE
     Indication: Rheumatoid arthritis
  45. SULFASALAZINE [Concomitant]
     Active Substance: SULFASALAZINE
  46. SULFASALAZINE [Concomitant]
     Active Substance: SULFASALAZINE
     Route: 048
  47. SULFASALAZINE [Concomitant]
     Active Substance: SULFASALAZINE
     Route: 048
  48. XELJANZ [Concomitant]
     Active Substance: TOFACITINIB CITRATE
     Indication: Rheumatoid arthritis
  49. XELJANZ [Concomitant]
     Active Substance: TOFACITINIB CITRATE

REACTIONS (21)
  - Arthralgia [Not Recovered/Not Resolved]
  - Condition aggravated [Not Recovered/Not Resolved]
  - Dermatitis allergic [Not Recovered/Not Resolved]
  - Drug ineffective [Not Recovered/Not Resolved]
  - Fatigue [Not Recovered/Not Resolved]
  - Hepatitis [Not Recovered/Not Resolved]
  - Hypersensitivity [Not Recovered/Not Resolved]
  - Inflammation [Not Recovered/Not Resolved]
  - Investigation abnormal [Not Recovered/Not Resolved]
  - Joint swelling [Not Recovered/Not Resolved]
  - Loss of personal independence in daily activities [Not Recovered/Not Resolved]
  - Musculoskeletal stiffness [Not Recovered/Not Resolved]
  - Pain [Not Recovered/Not Resolved]
  - Peripheral swelling [Not Recovered/Not Resolved]
  - Rheumatoid arthritis [Not Recovered/Not Resolved]
  - Sinusitis [Not Recovered/Not Resolved]
  - Sleep disorder [Not Recovered/Not Resolved]
  - Synovitis [Not Recovered/Not Resolved]
  - Therapeutic product effect decreased [Not Recovered/Not Resolved]
  - Treatment failure [Not Recovered/Not Resolved]
  - Hospitalisation [Not Recovered/Not Resolved]
